FAERS Safety Report 4338973-8 (Version None)
Quarter: 2004Q2

REPORT INFORMATION
  Report Type: 
  Country: None (occurrence: None)
  Receive Date: 20040409
  Receipt Date: 20040401
  Transmission Date: 20050107
  Serious: Yes (Other)
  Sender: FDA-Public Use
  Company Number: 2004022600

PATIENT
  Sex: Female
  Weight: 13.1543 kg

DRUGS (4)
  1. BENADRYL [Suspect]
     Indication: VOMITING IN PREGNANCY
     Dosage: ORAL
     Route: 048
     Dates: start: 20010101, end: 20010101
  2. NAPROXEN [Concomitant]
  3. METHOTREXATE [Concomitant]
  4. FOLIC ACID [Concomitant]

REACTIONS (4)
  - HEARING IMPAIRED [None]
  - JUVENILE ARTHRITIS [None]
  - MATERNAL DRUGS AFFECTING FOETUS [None]
  - SPEECH DISORDER [None]
